FAERS Safety Report 6443948-9 (Version None)
Quarter: 2009Q4

REPORT INFORMATION
  Report Type: 
  Country: None (occurrence: None)
  Receive Date: 20091113
  Receipt Date: 20091029
  Transmission Date: 20100525
  Serious: Yes (Hospitalization)
  Sender: FDA-Public Use
  Company Number: DSA_41913_2009

PATIENT
  Age: 59 Year
  Sex: Female

DRUGS (14)
  1. VASERETIC [Suspect]
     Indication: DRUG USE FOR UNKNOWN INDICATION
     Dosage: (20-12.5 MG TABLET, 1 MG, ONCE DAILY ORAL)
     Route: 048
     Dates: start: 20090925, end: 20090929
  2. FLUOXETINE HCL [Suspect]
     Indication: DRUG USE FOR UNKNOWN INDICATION
     Dosage: (30 MG BID ORAL)
     Route: 048
     Dates: start: 20060424, end: 20090929
  3. REMERON [Suspect]
     Indication: DRUG USE FOR UNKNOWN INDICATION
     Dosage: (15 MG QD ORAL)
     Route: 048
     Dates: start: 20090925, end: 20090929
  4. ARTHROTEC [Suspect]
     Indication: DRUG USE FOR UNKNOWN INDICATION
     Dosage: (DF ORAL)
     Route: 048
     Dates: start: 20080219, end: 20090929
  5. CO-DAFALGAN [Concomitant]
  6. CONCOR [Concomitant]
  7. CALCIMAGON-D3 [Concomitant]
  8. LACRYCON /02221601/ [Concomitant]
  9. VOLTAREN [Concomitant]
  10. ORTHO-GYNEST [Concomitant]
  11. IMODIUM /00384302/ [Concomitant]
  12. TEMESTA /00273201/ [Concomitant]
  13. NEOMYCIN SULFATE W/NYSTATIN/POLYMYXIN B SULF. [Concomitant]
  14. PERENTEROL /00838001/ [Concomitant]

REACTIONS (10)
  - BLOOD POTASSIUM DECREASED [None]
  - DIARRHOEA [None]
  - DISORIENTATION [None]
  - DYSARTHRIA [None]
  - EUPHORIC MOOD [None]
  - GAIT DISTURBANCE [None]
  - HYPONATRAEMIA [None]
  - NAUSEA [None]
  - SYNCOPE [None]
  - VOMITING [None]
